FAERS Safety Report 5194135-6 (Version None)
Quarter: 2006Q4

REPORT INFORMATION
  Report Type: 
  Country: None (occurrence: None)
  Receive Date: 20061220
  Receipt Date: 20061215
  Transmission Date: 20070319
  Serious: Yes (Other)
  Sender: FDA-Public Use
  Company Number: HQWYE348118DEC06

PATIENT
  Age: 45 Year
  Sex: Female

DRUGS (1)
  1. ADVIL [Suspect]
     Indication: HEADACHE
     Dosage: 2 CAPSULES X 1, ORAL; PERIODICALLY, ORAL  STARTED TWO YEARS AGO
     Route: 048
     Dates: start: 20061115, end: 20061115

REACTIONS (5)
  - DRUG HYPERSENSITIVITY [None]
  - EYE SWELLING [None]
  - OXYGEN SATURATION DECREASED [None]
  - PHARYNGEAL OEDEMA [None]
  - PRURITUS [None]
